FAERS Safety Report 9759745 (Version 1)
Quarter: 2013Q4

REPORT INFORMATION
  Report Type: Spontaneous
  Country: US (occurrence: US)
  Receive Date: 20131216
  Receipt Date: 20131216
  Transmission Date: 20140711
  Serious: No
  Sender: FDA-Public Use
  Company Number: US-GILEAD-2010-0029107

PATIENT
  Age: 69 Year
  Sex: Female
  Weight: 47.17 kg

DRUGS (9)
  1. LETAIRIS [Suspect]
     Indication: PULMONARY ARTERIAL HYPERTENSION
     Route: 048
     Dates: start: 20090528
  2. OXYGEN [Concomitant]
  3. REVATIO [Concomitant]
  4. TRAMADOL [Concomitant]
  5. LASIX [Concomitant]
  6. KLONOPIN [Concomitant]
  7. LEXAPRO [Concomitant]
  8. ATENOLOL [Concomitant]
  9. COUMADIN [Concomitant]

REACTIONS (1)
  - Dizziness [Unknown]
